FAERS Safety Report 15793140 (Version 2)
Quarter: 2019Q1

REPORT INFORMATION
  Report Type: Spontaneous
  Country: US (occurrence: US)
  Receive Date: 20190107
  Receipt Date: 20190121
  Transmission Date: 20190417
  Serious: No
  Sender: FDA-Public Use
  Company Number: US-BIOGEN-2018BI00677828

PATIENT
  Sex: Female

DRUGS (2)
  1. TYSABRI [Suspect]
     Active Substance: NATALIZUMAB
     Indication: MULTIPLE SCLEROSIS
     Route: 042
     Dates: start: 20150219, end: 20180828
  2. TYSABRI [Suspect]
     Active Substance: NATALIZUMAB
     Route: 065

REACTIONS (7)
  - Headache [Unknown]
  - Dysphonia [Unknown]
  - Product dose omission [Unknown]
  - Visual impairment [Unknown]
  - Fall [Unknown]
  - Fatigue [Unknown]
  - Facial pain [Unknown]
